FAERS Safety Report 5405306-5 (Version None)
Quarter: 2007Q3

REPORT INFORMATION
  Report Type: 
  Country: None (occurrence: None)
  Receive Date: 20070803
  Receipt Date: 20070730
  Transmission Date: 20080115
  Serious: Yes (Disabling)
  Sender: FDA-Public Use
  Company Number: B0481070A

PATIENT
  Age: 77 Year
  Sex: Male

DRUGS (4)
  1. SERETIDE [Suspect]
     Indication: ASTHMA
     Dosage: 250MCG TWICE PER DAY
     Route: 055
     Dates: start: 20070601, end: 20070701
  2. ONON [Concomitant]
     Route: 048
  3. PROCATEROL HCL [Concomitant]
     Route: 065
  4. AMBROXOL HYDROCHLORIDE [Concomitant]
     Route: 048

REACTIONS (2)
  - HYPOAESTHESIA [None]
  - OEDEMA [None]
